FAERS Safety Report 13289107 (Version 13)
Quarter: 2018Q2

REPORT INFORMATION
  Report Type: Spontaneous
  Country: JP (occurrence: JP)
  Receive Date: 20170302
  Receipt Date: 20180406
  Transmission Date: 20180711
  Serious: Yes (Hospitalization, Other)
  Sender: FDA-Public Use
  Company Number: JP-AMGEN-JPNCT2016185827

PATIENT
  Age: 52 Year
  Sex: Male
  Weight: 50.7 kg

DRUGS (16)
  1. CALCIUM LEVOFOLINATE [Suspect]
     Active Substance: LEVOLEUCOVORIN CALCIUM
     Indication: METASTASES TO LUNG
  2. GENTAMICIN SULFATE. [Concomitant]
     Active Substance: GENTAMICIN SULFATE
     Indication: SKIN ABRASION
     Dosage: UNK UNK, QD
     Route: 062
     Dates: start: 20170210
  3. PANITUMUMAB [Suspect]
     Active Substance: PANITUMUMAB
     Indication: COLON CANCER
     Dosage: 6 MG/KG, Q2WK
     Route: 041
     Dates: start: 20161104, end: 20170210
  4. CALCIUM LEVOFOLINATE [Suspect]
     Active Substance: LEVOLEUCOVORIN CALCIUM
     Indication: METASTASES TO LIVER
     Dosage: 200 MG/M2, Q2WEEKS
     Route: 041
     Dates: start: 20170324, end: 20170424
  5. FLUOROURACIL. [Suspect]
     Active Substance: FLUOROURACIL
     Indication: METASTASES TO LUNG
     Dosage: 400 MG/M2, Q2WK
     Route: 040
     Dates: start: 20170324, end: 20170424
  6. FLUOROURACIL. [Suspect]
     Active Substance: FLUOROURACIL
     Dosage: 2400 MG/M2, Q2WK
     Route: 041
     Dates: start: 20170324, end: 20170424
  7. MUCOPOLYSACCHARIDE POLYSULFURIC ACID ESTER [Concomitant]
     Indication: DRY SKIN PROPHYLAXIS
     Dosage: UNK UNK, QD
     Route: 062
     Dates: start: 20161104
  8. OXALIPLATIN. [Suspect]
     Active Substance: OXALIPLATIN
     Indication: METASTASES TO LIVER
     Dosage: 85 MG/M2, Q2WEEKS
     Route: 041
     Dates: start: 20170324, end: 20170424
  9. PANITUMUMAB [Suspect]
     Active Substance: PANITUMUMAB
     Indication: METASTASES TO LIVER
  10. CALCIUM LEVOFOLINATE [Suspect]
     Active Substance: LEVOLEUCOVORIN CALCIUM
     Indication: COLON CANCER
     Dosage: 200 MG/M2, Q2WEEKS
     Route: 041
     Dates: start: 20161104, end: 20170210
  11. FLUOROURACIL. [Suspect]
     Active Substance: FLUOROURACIL
     Indication: COLON CANCER
     Dosage: 400 MG/M2, Q2WK
     Route: 040
     Dates: start: 20161104, end: 20170210
  12. MINOCYCLINE HYDROCHLORIDE. [Concomitant]
     Active Substance: MINOCYCLINE HYDROCHLORIDE
     Indication: INFECTION PROPHYLAXIS
     Dosage: 100 MG, QD
     Route: 048
     Dates: start: 20161104
  13. PANITUMUMAB [Suspect]
     Active Substance: PANITUMUMAB
     Indication: METASTASES TO LUNG
  14. OXALIPLATIN. [Suspect]
     Active Substance: OXALIPLATIN
     Indication: COLON CANCER
     Dosage: 85 MG/M2, Q2WEEKS
     Route: 041
     Dates: start: 20161104, end: 20170210
  15. OXALIPLATIN. [Suspect]
     Active Substance: OXALIPLATIN
     Indication: METASTASES TO LUNG
  16. FLUOROURACIL. [Suspect]
     Active Substance: FLUOROURACIL
     Indication: METASTASES TO LIVER
     Dosage: 2400 MG/M2, Q2WK
     Route: 041
     Dates: start: 20161104, end: 20170210

REACTIONS (8)
  - Stomatitis [Recovered/Resolved]
  - Dermatitis acneiform [Recovered/Resolved]
  - Peripheral sensory neuropathy [Not Recovered/Not Resolved]
  - Neutrophil count decreased [Recovered/Resolved]
  - Subcutaneous haematoma [Recovered/Resolved]
  - Pneumatosis intestinalis [Recovered/Resolved]
  - Platelet count decreased [Recovered/Resolved]
  - Nasopharyngitis [Recovered/Resolved]

NARRATIVE: CASE EVENT DATE: 20170223
